FAERS Safety Report 6953256-5 (Version None)
Quarter: 2010Q3

REPORT INFORMATION
  Report Type: 
  Country: None (occurrence: None)
  Receive Date: 20100829
  Receipt Date: 20100601
  Transmission Date: 20110219
  Serious: No
  Sender: FDA-Public Use
  Company Number: US-ABBOTT-10P-163-0649304-00

PATIENT
  Sex: Female
  Weight: 61.744 kg

DRUGS (6)
  1. NIASPAN [Suspect]
     Indication: BLOOD CHOLESTEROL INCREASED
     Dates: start: 20100301, end: 20100501
  2. NIASPAN [Suspect]
     Dates: start: 20100501
  3. COUMADIN [Concomitant]
     Indication: THROMBOSIS
  4. LEVOTHROID [Concomitant]
     Indication: HYPOTHYROIDISM
  5. OXYBUTYNIN CHRLORIDE [Concomitant]
     Indication: INCONTINENCE
  6. LISINOPRIL [Concomitant]
     Indication: HYPERTENSION

REACTIONS (1)
  - FLUSHING [None]
